FAERS Safety Report 10033298 (Version 1)
Quarter: 2014Q1

REPORT INFORMATION
  Report Type: Spontaneous
  Country: NL (occurrence: NL)
  Receive Date: 20140324
  Receipt Date: 20140324
  Transmission Date: 20141002
  Serious: Yes (Hospitalization)
  Sender: FDA-Public Use
  Company Number: NL-BRISTOL-MYERS SQUIBB COMPANY-20547204

PATIENT
  Age: 82 Year
  Sex: Male
  Weight: 90 kg

DRUGS (1)
  1. MITOMYCIN-C [Suspect]
     Indication: BLADDER CANCER
     Dates: start: 20140301, end: 20140302

REACTIONS (1)
  - Folliculitis [Recovered/Resolved]
